FAERS Safety Report 10216532 (Version 8)
Quarter: 2015Q3

REPORT INFORMATION
  Report Type: Spontaneous
  Country: US (occurrence: US)
  Receive Date: 20140604
  Receipt Date: 20150818
  Transmission Date: 20151125
  Serious: Yes (Hospitalization, Other)
  Sender: FDA-Public Use
  Company Number: US-PFIZER INC-2014146005

PATIENT
  Age: 56 Year
  Sex: Female
  Weight: 93 kg

DRUGS (13)
  1. LISINOPRIL. [Concomitant]
     Active Substance: LISINOPRIL
     Indication: HYPERTENSION
     Dosage: 10 MG, 1X/DAY
  2. NARDIL [Suspect]
     Active Substance: PHENELZINE SULFATE
     Dosage: 0.5 DF, UNK
     Dates: end: 20141116
  3. NARDIL [Suspect]
     Active Substance: PHENELZINE SULFATE
     Dosage: UNK
     Dates: end: 20150527
  4. SYNTHROID [Concomitant]
     Active Substance: LEVOTHYROXINE SODIUM
     Dosage: 112 ?G, UNK
  5. NARDIL [Suspect]
     Active Substance: PHENELZINE SULFATE
     Indication: ANXIETY
     Dosage: 15 MG, 3X/DAY
     Route: 048
  6. NARDIL [Suspect]
     Active Substance: PHENELZINE SULFATE
     Dosage: 0.25 DF, UNK
  7. SYNTHROID [Concomitant]
     Active Substance: LEVOTHYROXINE SODIUM
     Dosage: 125 ?G, UNK
  8. LORAZEPAM. [Concomitant]
     Active Substance: LORAZEPAM
     Indication: DRUG TOLERANCE
     Dosage: 0.5 MG, 1X/DAY
  9. NARDIL [Suspect]
     Active Substance: PHENELZINE SULFATE
     Indication: AGORAPHOBIA
     Dosage: 15 MG, 2X/DAY
     Route: 048
     Dates: end: 20140527
  10. NARDIL [Suspect]
     Active Substance: PHENELZINE SULFATE
     Indication: PANIC ATTACK
     Dosage: 15 MG, 1X/DAY
     Route: 048
     Dates: start: 1986
  11. NARDIL [Suspect]
     Active Substance: PHENELZINE SULFATE
     Dosage: 15 MG, 1X/DAY
  12. SYNTHROID [Concomitant]
     Active Substance: LEVOTHYROXINE SODIUM
     Dosage: 137 ?G, UNK
  13. SYNTHROID [Concomitant]
     Active Substance: LEVOTHYROXINE SODIUM
     Indication: HYPOTHYROIDISM
     Dosage: 100 ?G, 1X/DAY AM

REACTIONS (21)
  - Blood glucose decreased [Not Recovered/Not Resolved]
  - Anxiety [Recovered/Resolved]
  - Orthostatic hypotension [Unknown]
  - Paraesthesia [Recovered/Resolved]
  - Intentional product misuse [Not Recovered/Not Resolved]
  - Vitamin D decreased [Not Recovered/Not Resolved]
  - Drug withdrawal syndrome [Not Recovered/Not Resolved]
  - Product quality issue [Unknown]
  - Balance disorder [Not Recovered/Not Resolved]
  - Tinnitus [Not Recovered/Not Resolved]
  - Palpitations [Unknown]
  - Abdominal discomfort [Recovered/Resolved]
  - Hypertension [Unknown]
  - Dizziness [Not Recovered/Not Resolved]
  - Malaise [Not Recovered/Not Resolved]
  - Vitamin B12 increased [Recovered/Resolved]
  - Feeling jittery [Unknown]
  - Vein disorder [Unknown]
  - Nervousness [Unknown]
  - Malabsorption [Unknown]
  - Product use issue [Not Recovered/Not Resolved]

NARRATIVE: CASE EVENT DATE: 1986
